FAERS Safety Report 8780707 (Version 1)
Quarter: 2012Q4

REPORT INFORMATION
  Report Type: 
  Country: DK (occurrence: DK)
  Receive Date: 20120913
  Receipt Date: 20120913
  Transmission Date: 20130627
  Serious: Yes (Other)
  Sender: FDA-Public Use
  Company Number: DK-AMGEN-DNKSP2012056795

PATIENT

DRUGS (2)
  1. NPLATE [Suspect]
     Indication: AUTOIMMUNE THROMBOCYTOPENIA
     Dosage: UNK
  2. ELTROMBOPAG [Concomitant]
     Indication: AUTOIMMUNE THROMBOCYTOPENIA

REACTIONS (2)
  - Splenectomy [Unknown]
  - Drug ineffective [Unknown]
